FAERS Safety Report 18732205 (Version 1)
Quarter: 2021Q1

REPORT INFORMATION
  Report Type: Spontaneous
  Country: US (occurrence: US)
  Receive Date: 20210112
  Receipt Date: 20210112
  Transmission Date: 20210419
  Serious: No
  Sender: FDA-Public Use
  Company Number: US-PFIZER INC-2021006641

PATIENT
  Sex: Female
  Weight: 79.38 kg

DRUGS (1)
  1. GENOTROPIN [Suspect]
     Active Substance: SOMATROPIN
     Dosage: UNK

REACTIONS (4)
  - Reaction to preservatives [Unknown]
  - Pain [Unknown]
  - Burning sensation [Unknown]
  - Rash [Unknown]
